FAERS Safety Report 17895911 (Version 1)
Quarter: 2020Q2

REPORT INFORMATION
  Report Type: Spontaneous
  Country: US (occurrence: US)
  Receive Date: 20200615
  Receipt Date: 20200615
  Transmission Date: 20200714
  Serious: Yes (Hospitalization)
  Sender: FDA-Public Use
  Company Number: US-PAIPHARMA-2020-US-010565

PATIENT
  Age: 62 Year
  Sex: Male

DRUGS (2)
  1. SULFATRIM [Suspect]
     Active Substance: SULFAMETHOXAZOLE\TRIMETHOPRIM
     Indication: ACUTE FEBRILE NEUTROPHILIC DERMATOSIS
  2. PREDNISONE. [Concomitant]
     Active Substance: PREDNISONE

REACTIONS (2)
  - Thrombotic microangiopathy [Unknown]
  - Renal failure [Not Recovered/Not Resolved]
